FAERS Safety Report 19036813 (Version 1)
Quarter: 2021Q1

REPORT INFORMATION
  Report Type: Spontaneous
  Country: DE (occurrence: DE)
  Receive Date: 20210322
  Receipt Date: 20210322
  Transmission Date: 20210420
  Serious: Yes (Other)
  Sender: FDA-Public Use
  Company Number: DE-NEBO-PC006657

PATIENT
  Age: 49 Year
  Sex: Female
  Weight: 62 kg

DRUGS (1)
  1. MONOFER [Suspect]
     Active Substance: IRON ISOMALTOSIDE 1000
     Indication: PRODUCT USED FOR UNKNOWN INDICATION
     Route: 042
     Dates: start: 20200319, end: 20200319

REACTIONS (1)
  - Bronchospasm [Recovered/Resolved]

NARRATIVE: CASE EVENT DATE: 20200319
